FAERS Safety Report 19207452 (Version 3)
Quarter: 2021Q2

REPORT INFORMATION
  Report Type: Spontaneous
  Country: US (occurrence: US)
  Receive Date: 20210503
  Receipt Date: 20210629
  Transmission Date: 20210717
  Serious: Yes (Other)
  Sender: FDA-Public Use
  Company Number: US-PFIZER INC-2021200359

PATIENT
  Age: 74 Year
  Sex: Female

DRUGS (7)
  1. IBRANCE [Suspect]
     Active Substance: PALBOCICLIB
     Dosage: 125 MG
     Dates: start: 20210201
  2. IBRANCE [Suspect]
     Active Substance: PALBOCICLIB
     Dosage: 125 MG
     Dates: start: 20210218
  3. IBRANCE [Suspect]
     Active Substance: PALBOCICLIB
     Dosage: 125 MG
     Dates: start: 20210222
  4. IBRANCE [Suspect]
     Active Substance: PALBOCICLIB
     Dosage: 125 MG
     Dates: start: 20210313, end: 2021
  5. IBRANCE [Suspect]
     Active Substance: PALBOCICLIB
     Dosage: 125 MG
     Dates: start: 20210204
  6. IBRANCE [Suspect]
     Active Substance: PALBOCICLIB
     Dosage: 125 MG
     Dates: start: 20210307
  7. LETROZOLE. [Concomitant]
     Active Substance: LETROZOLE
     Dosage: UNK

REACTIONS (17)
  - Skin ulcer [Unknown]
  - Back pain [Unknown]
  - Fatigue [Unknown]
  - Gait disturbance [Unknown]
  - Depression [Unknown]
  - Breast enlargement [Unknown]
  - Product dose omission issue [Unknown]
  - Mental impairment [Unknown]
  - Breast haemorrhage [Unknown]
  - Nausea [Recovered/Resolved]
  - Depressed mood [Unknown]
  - Diarrhoea [Unknown]
  - Breast discharge [Unknown]
  - Pain [Unknown]
  - Breast swelling [Unknown]
  - Urine output increased [Unknown]
  - Neoplasm progression [Unknown]
